FAERS Safety Report 5922980-5 (Version None)
Quarter: 2008Q4

REPORT INFORMATION
  Report Type: 
  Country: None (occurrence: None)
  Receive Date: 20081018
  Receipt Date: 20081007
  Transmission Date: 20090506
  Serious: Yes (Other)
  Sender: FDA-Public Use
  Company Number: BR-PFIZER INC-2008046382

PATIENT
  Sex: Male
  Weight: 80 kg

DRUGS (4)
  1. CELEBRA [Suspect]
     Indication: OSTEOCHONDROSIS
     Route: 048
     Dates: start: 20030101, end: 20080101
  2. CITALOPRAM HYDROBROMIDE [Concomitant]
  3. SELOZOK [Concomitant]
     Route: 048
  4. CENTRUM [Concomitant]
     Route: 048

REACTIONS (2)
  - ARTHROPATHY [None]
  - DRUG INEFFECTIVE [None]
